FAERS Safety Report 24047591 (Version 2)
Quarter: 2024Q3

REPORT INFORMATION
  Report Type: Spontaneous
  Country: FR (occurrence: FR)
  Receive Date: 20240703
  Receipt Date: 20240712
  Transmission Date: 20241016
  Serious: Yes (Hospitalization, Disabling)
  Sender: MYLAN
  Company Number: None

PATIENT
  Age: 58 Year
  Sex: Female
  Weight: 92 kg

DRUGS (3)
  1. LEVOFLOXACIN [Suspect]
     Active Substance: LEVOFLOXACIN
     Indication: Respiratory tract infection
     Dosage: 500 MILLIGRAM, BID
     Route: 048
     Dates: start: 20231021, end: 20231028
  2. Solupred [Concomitant]
     Indication: Lung opacity
     Dosage: 80 MILLIGRAM, QD
     Route: 048
     Dates: start: 20231016, end: 20231019
  3. Solupred [Concomitant]
     Dosage: 100 MILLIGRAM, QD
     Route: 048
     Dates: start: 20231021, end: 20231025

REACTIONS (5)
  - Executive dysfunction [Not Recovered/Not Resolved]
  - Behaviour disorder [Not Recovered/Not Resolved]
  - Disturbance in attention [Not Recovered/Not Resolved]
  - Delirium [Not Recovered/Not Resolved]
  - Memory impairment [Not Recovered/Not Resolved]

NARRATIVE: CASE EVENT DATE: 20231028
